APPROVED DRUG PRODUCT: PATADAY ONCE DAILY RELIEF
Active Ingredient: OLOPATADINE HYDROCHLORIDE
Strength: EQ 0.2% BASE
Dosage Form/Route: SOLUTION/DROPS;OPHTHALMIC
Application: N021545 | Product #001
Applicant: ALCON LABORATORIES INC
Approved: Dec 22, 2004 | RLD: Yes | RS: Yes | Type: OTC